FAERS Safety Report 7800919-5 (Version None)
Quarter: 2011Q4

REPORT INFORMATION
  Report Type: 
  Country: None (occurrence: None)
  Receive Date: 20111006
  Receipt Date: 20110928
  Transmission Date: 20120403
  Serious: Yes (Death)
  Sender: FDA-Public Use
  Company Number: US-BAYER-2011-021582

PATIENT
  Sex: Male
  Weight: 76.19 kg

DRUGS (19)
  1. DIOVAN [Concomitant]
     Dosage: 80 MG, ONCE
     Route: 048
  2. GADOLINIUM IN UNSPECIFIED DRUG [Suspect]
     Indication: ARTERIOGRAM CORONARY
     Dosage: UNK
     Dates: start: 19960510, end: 19960510
  3. GADOLINIUM IN UNSPECIFIED DRUG [Suspect]
  4. CELEBREX [Concomitant]
     Dosage: 200 MG, UNK
     Route: 048
  5. GADOLINIUM IN UNSPECIFIED DRUG [Suspect]
     Dosage: UNK
     Dates: start: 20050617, end: 20050617
  6. GLUCOVANCE [Concomitant]
  7. LIPITOR [Concomitant]
     Dosage: 20 MG, UNK
  8. OMNISCAN [Suspect]
     Indication: NUCLEAR MAGNETIC RESONANCE IMAGING
  9. CARVEDILOL [Concomitant]
     Dosage: 3.125 MG, UNK
  10. DIABETA [Concomitant]
  11. MAGNEVIST [Suspect]
     Indication: IMAGING PROCEDURE
  12. OMNISCAN [Suspect]
     Indication: IMAGING PROCEDURE
     Dosage: 20 ML, UNK
     Dates: start: 20031114, end: 20031114
  13. LEVOTHYROXINE SODIUM [Concomitant]
  14. OPTIMARK [Suspect]
     Indication: IMAGING PROCEDURE
  15. GADOLINIUM IN UNSPECIFIED DRUG [Suspect]
     Indication: ENDOSCOPIC RETROGRADE CHOLANGIOPANCREATOGRAPHY
  16. GADOLINIUM IN UNSPECIFIED DRUG [Suspect]
     Indication: NUCLEAR MAGNETIC RESONANCE IMAGING
     Dosage: UNK
     Dates: start: 20050623, end: 20050623
  17. NEURONTIN [Concomitant]
     Dosage: 300 MG, QID
     Route: 048
     Dates: start: 20031101
  18. GADOLINIUM IN UNSPECIFIED DRUG [Suspect]
     Dosage: UNK
     Dates: start: 20050628, end: 20050628
  19. HYDROCODONE BITARTRATE [Concomitant]
     Dosage: UNK
     Dates: start: 20031101

REACTIONS (9)
  - SKIN EXFOLIATION [None]
  - NEPHROGENIC SYSTEMIC FIBROSIS [None]
  - SKIN HYPERTROPHY [None]
  - PAIN [None]
  - EMOTIONAL DISTRESS [None]
  - ARTHRALGIA [None]
  - ANHEDONIA [None]
  - SWELLING [None]
  - EXTREMITY CONTRACTURE [None]
